FAERS Safety Report 21140005 (Version 1)
Quarter: 2022Q3

REPORT INFORMATION
  Report Type: Spontaneous
  Country: US (occurrence: US)
  Receive Date: 20220728
  Receipt Date: 20220728
  Transmission Date: 20221026
  Serious: No
  Sender: FDA-Public Use
  Company Number: US-ELI_LILLY_AND_COMPANY-US202207011291

PATIENT
  Age: 82 Year
  Sex: Male

DRUGS (1)
  1. HUMULIN 70/30 [Suspect]
     Active Substance: INSULIN HUMAN
     Indication: Diabetes mellitus
     Dosage: 10 U, DAILY (IN THE EVENING)
     Route: 065

REACTIONS (2)
  - Accidental underdose [Unknown]
  - Product storage error [Unknown]

NARRATIVE: CASE EVENT DATE: 20220723
